FAERS Safety Report 8811749 (Version 2)
Quarter: 2014Q2

REPORT INFORMATION
  Report Type: Spontaneous
  Country: US (occurrence: US)
  Receive Date: 20120927
  Receipt Date: 20130810
  Transmission Date: 20141212
  Serious: Yes (Hospitalization)
  Sender: FDA-Public Use
  Company Number: US-BAXTER-2012BAX018287

PATIENT
  Sex: 0

DRUGS (4)
  1. DOBUTAMINE HYDROCHLORIDE IN 5% DEXTROSE INJECTION [Suspect]
     Indication: STRESS ECHOCARDIOGRAM
     Route: 042
  2. DOBUTAMINE HYDROCHLORIDE IN 5% DEXTROSE INJECTION [Suspect]
     Indication: OFF LABEL USE
     Route: 042
  3. DOBUTAMINE HYDROCHLORIDE IN 5% DEXTROSE INJECTION [Suspect]
     Route: 042
  4. ATROPINE [Suspect]
     Indication: STRESS ECHOCARDIOGRAM
     Dosage: 0.25-1 MG
     Route: 042

REACTIONS (1)
  - Chest pain [Unknown]
